FAERS Safety Report 4524663-5 (Version None)
Quarter: 2004Q4

REPORT INFORMATION
  Report Type: 
  Country: None (occurrence: None)
  Receive Date: 20041211
  Receipt Date: 20041201
  Transmission Date: 20050328
  Serious: Yes (Hospitalization)
  Sender: FDA-Public Use
  Company Number: JP-MERCK-0412USA00629

PATIENT

DRUGS (1)
  1. INDOCIN [Suspect]
     Indication: NASOPHARYNGITIS
     Route: 048
     Dates: start: 20030301

REACTIONS (1)
  - MENINGITIS ASEPTIC [None]
